FAERS Safety Report 10606905 (Version 1)
Quarter: 2014Q4

REPORT INFORMATION
  Report Type: Spontaneous
  Country: TR (occurrence: TR)
  Receive Date: 20141125
  Receipt Date: 20141125
  Transmission Date: 20150529
  Serious: Yes (Other)
  Sender: FDA-Public Use
  Company Number: PHHY2014TR149260

PATIENT
  Age: 21 Year
  Sex: Female

DRUGS (4)
  1. AZATHIOPRINE. [Suspect]
     Active Substance: AZATHIOPRINE
     Indication: SYSTEMIC LUPUS ERYTHEMATOSUS
     Dosage: 150 MG, QD
     Route: 065
  2. PREDNISOLONE. [Suspect]
     Active Substance: PREDNISOLONE
     Dosage: 60 MG, QD
     Route: 065
  3. PREDNISOLONE. [Suspect]
     Active Substance: PREDNISOLONE
     Indication: SYSTEMIC LUPUS ERYTHEMATOSUS
     Dosage: 30 MG, QD
     Route: 065
  4. HYDROXYCHLOROQUINE SULFATE. [Concomitant]
     Active Substance: HYDROXYCHLOROQUINE SULFATE
     Indication: SYSTEMIC LUPUS ERYTHEMATOSUS
     Dosage: 400 MG, QD
     Route: 065

REACTIONS (13)
  - Bronchopulmonary aspergillosis [Unknown]
  - Oesophageal candidiasis [Unknown]
  - Pneumothorax [Recovered/Resolved]
  - Pneumomediastinum [Unknown]
  - Staphylococcus test positive [Unknown]
  - Dysphagia [Unknown]
  - Oral disorder [Unknown]
  - Sputum purulent [Unknown]
  - Blood immunoglobulin E increased [Unknown]
  - Pharyngeal erythema [Unknown]
  - Pain [Unknown]
  - Dyspnoea [Recovering/Resolving]
  - Oesophageal ulcer [Unknown]
